FAERS Safety Report 5095974-2 (Version None)
Quarter: 2006Q3

REPORT INFORMATION
  Report Type: 
  Country: None (occurrence: None)
  Receive Date: 20060905
  Receipt Date: 20060828
  Transmission Date: 20061208
  Serious: Yes (Hospitalization)
  Sender: FDA-Public Use
  Company Number: US-GLAXOSMITHKLINE-A0618685A

PATIENT
  Age: 54 Year
  Sex: Female
  Weight: 44 kg

DRUGS (6)
  1. TOPOTECAN [Suspect]
     Dosage: 2MGM2 WEEKLY
     Route: 042
     Dates: start: 20060725, end: 20060822
  2. CISPLATIN [Suspect]
     Dosage: 40MGM2 WEEKLY
     Route: 042
     Dates: start: 20060725, end: 20060821
  3. FENTANYL [Concomitant]
  4. DARVOCET [Concomitant]
  5. LOMOTIL [Concomitant]
  6. BACTRIM DS [Concomitant]

REACTIONS (6)
  - DIARRHOEA [None]
  - EATING DISORDER [None]
  - HYPERKALAEMIA [None]
  - HYPONATRAEMIA [None]
  - NAUSEA [None]
  - VOMITING [None]
